FAERS Safety Report 23517179 (Version 1)
Quarter: 2024Q1

REPORT INFORMATION
  Report Type: Spontaneous
  Country: AU (occurrence: AU)
  Receive Date: 20240213
  Receipt Date: 20240213
  Transmission Date: 20240410
  Serious: Yes (Other)
  Sender: FDA-Public Use
  Company Number: AU-BAYER-2024A017670

PATIENT
  Age: 51 Year
  Sex: Male

DRUGS (1)
  1. ULTRAVIST [Suspect]
     Active Substance: IOPROMIDE
     Indication: Computerised tomogram
     Dosage: 95 ML, ONCE
     Route: 042
     Dates: start: 20240124, end: 20240124

REACTIONS (4)
  - Erythema [Recovered/Resolved]
  - Urticaria [Recovered/Resolved]
  - Oral discomfort [Recovered/Resolved]
  - Oropharyngeal discomfort [None]

NARRATIVE: CASE EVENT DATE: 20240124
